FAERS Safety Report 24332806 (Version 1)
Quarter: 2024Q3

REPORT INFORMATION
  Report Type: Spontaneous
  Country: CA (occurrence: CA)
  Receive Date: 20240918
  Receipt Date: 20240918
  Transmission Date: 20241016
  Serious: Yes (Other)
  Sender: PFIZER
  Company Number: CA-PFIZER INC-202300229642

PATIENT
  Age: 55 Year
  Sex: Female

DRUGS (1)
  1. ABRILADA [Suspect]
     Active Substance: ADALIMUMAB-AFZB
     Indication: Hidradenitis
     Dosage: 1 DF, PREFILLED PEN 160MG W0, 80MG W2 THEN 40MG Q WEEK STARTING W4
     Route: 058
     Dates: start: 20221028, end: 202405

REACTIONS (5)
  - Adrenal neoplasm [Unknown]
  - Urinary tract infection [Not Recovered/Not Resolved]
  - Infection [Not Recovered/Not Resolved]
  - Condition aggravated [Recovering/Resolving]
  - Cortisol increased [Unknown]
